FAERS Safety Report 9563690 (Version 1)
Quarter: 2013Q1

REPORT INFORMATION
  Report Type: Spontaneous
  Country: US (occurrence: None)
  Receive Date: 20121227
  Receipt Date: 20121227
  Transmission Date: 20140127
  Serious: Yes (Other)
  Sender: FDA-Public Use
  Company Number: PHEH2012US012177

PATIENT
  Age: 81 Year
  Sex: Male
  Weight: 162 kg

DRUGS (1)
  1. EXJADE [Suspect]
     Indication: IRON OVERLOAD

REACTIONS (2)
  - Myelofibrosis [None]
  - Acute leukaemia [None]
